FAERS Safety Report 10670960 (Version 1)
Quarter: 2014Q4

REPORT INFORMATION
  Report Type: Report from Study
  Country: JP (occurrence: JP)
  Receive Date: 20141223
  Receipt Date: 20141223
  Transmission Date: 20150529
  Serious: Yes (Disabling)
  Sender: FDA-Public Use
  Company Number: JP-BAYER-2014-187204

PATIENT
  Age: 53 Year
  Sex: Female

DRUGS (3)
  1. RINDERON V [Concomitant]
     Active Substance: BETAMETHASONE VALERATE
  2. STIVARGA [Suspect]
     Active Substance: REGORAFENIB
     Indication: COLORECTAL CANCER
     Dosage: UNK
     Route: 048
     Dates: start: 201410, end: 20141214
  3. STIVARGA [Suspect]
     Active Substance: REGORAFENIB
     Indication: COLORECTAL CANCER
     Dosage: UNK
     Route: 048
     Dates: start: 20140926, end: 201410

REACTIONS (2)
  - Pyrexia [Recovering/Resolving]
  - Retinal artery occlusion [Not Recovered/Not Resolved]

NARRATIVE: CASE EVENT DATE: 20141003
